FAERS Safety Report 9384339 (Version 2)
Quarter: 2013Q3

REPORT INFORMATION
  Report Type: Report from Study
  Country: BR (occurrence: BR)
  Receive Date: 20130705
  Receipt Date: 20130731
  Transmission Date: 20140515
  Serious: Yes (Other)
  Sender: FDA-Public Use
  Company Number: PHHY2013BR070565

PATIENT
  Sex: Female

DRUGS (3)
  1. TRILEPTAL [Suspect]
     Indication: PNEUMONIA BACTERIAL
     Dosage: UNK UKN, BID
     Route: 048
  2. TRILEPTAL [Suspect]
     Indication: OFF LABEL USE
  3. NOEX [Concomitant]
     Indication: ADENOIDAL DISORDER
     Dosage: 1 DF, QD
     Route: 061

REACTIONS (3)
  - Nuclear magnetic resonance imaging brain abnormal [Unknown]
  - Hypersomnia [Recovering/Resolving]
  - Somnolence [Recovered/Resolved]
